FAERS Safety Report 22721722 (Version 2)
Quarter: 2023Q4

REPORT INFORMATION
  Report Type: Report from Study
  Country: GB (occurrence: GB)
  Receive Date: 20230719
  Receipt Date: 20231028
  Transmission Date: 20240109
  Serious: Yes (Hospitalization)
  Sender: FDA-Public Use
  Company Number: GB-JNJFOC-20230731828

PATIENT
  Age: 5 Decade
  Sex: Female
  Weight: 91.7 kg

DRUGS (14)
  1. TREMFYA [Suspect]
     Active Substance: GUSELKUMAB
     Indication: Psoriasis
     Route: 065
     Dates: start: 20211101, end: 20220317
  2. TREMFYA [Suspect]
     Active Substance: GUSELKUMAB
  3. TREMFYA [Suspect]
     Active Substance: GUSELKUMAB
  4. OMEPRAZOLE [Concomitant]
     Active Substance: OMEPRAZOLE
     Dates: start: 20090901, end: 20230520
  5. COCODAMOL [Concomitant]
     Active Substance: ACETAMINOPHEN\CODEINE PHOSPHATE
     Dates: start: 20100101
  6. PREDNISOLONE [Concomitant]
     Active Substance: PREDNISOLONE
     Dates: start: 20191205, end: 20230320
  7. LEFLUNOMIDE [Concomitant]
     Active Substance: LEFLUNOMIDE
     Dates: start: 20191205
  8. METHOTREXATE [Concomitant]
     Active Substance: METHOTREXATE
     Dates: start: 20211001
  9. UPADACITINIB [Concomitant]
     Active Substance: UPADACITINIB
     Dates: start: 20220317
  10. ESOMEPRAZOLE [Concomitant]
     Active Substance: ESOMEPRAZOLE
     Dates: start: 20230520
  11. PREDNISOLONE [Concomitant]
     Active Substance: PREDNISOLONE
     Dates: start: 20230520
  12. METHYLPREDNISOLONE [Concomitant]
     Active Substance: METHYLPREDNISOLONE
     Dates: start: 20230520, end: 20230520
  13. LIDOCAINE [Concomitant]
     Active Substance: LIDOCAINE
     Dates: start: 20230520, end: 20230520
  14. GOLIMUMAB [Concomitant]
     Active Substance: GOLIMUMAB
     Dates: start: 20230523

REACTIONS (1)
  - Subarachnoid haemorrhage [Recovered/Resolved with Sequelae]

NARRATIVE: CASE EVENT DATE: 20220413
